APPROVED DRUG PRODUCT: DEXMETHYLPHENIDATE HYDROCHLORIDE
Active Ingredient: DEXMETHYLPHENIDATE HYDROCHLORIDE
Strength: 30MG
Dosage Form/Route: CAPSULE, EXTENDED RELEASE;ORAL
Application: A215523 | Product #006 | TE Code: AB
Applicant: ASCENT PHARMACEUTICALS INC
Approved: Dec 8, 2021 | RLD: No | RS: No | Type: RX